FAERS Safety Report 8536466-5 (Version None)
Quarter: 2012Q3

REPORT INFORMATION
  Report Type: 
  Country: None (occurrence: None)
  Receive Date: 20120718
  Receipt Date: 20120718
  Transmission Date: 20120928
  Serious: Yes (Hospitalization)
  Sender: FDA-Public Use
  Company Number: None

PATIENT
  Age: 42 Year
  Sex: Female
  Weight: 67.1324 kg

DRUGS (1)
  1. LOESTRIN 24 FE [Suspect]
     Indication: MENSTRUAL DISORDER
     Dosage: DAILY
     Dates: start: 20110701, end: 20110919

REACTIONS (2)
  - PULMONARY EMBOLISM [None]
  - HEART RATE DECREASED [None]
